FAERS Safety Report 17683447 (Version 2)
Quarter: 2020Q4

REPORT INFORMATION
  Report Type: Spontaneous
  Country: US (occurrence: US)
  Receive Date: 20200420
  Receipt Date: 20201017
  Transmission Date: 20210113
  Serious: Yes (Other)
  Sender: FDA-Public Use
  Company Number: US-GILEAD-2020-0459559

PATIENT
  Age: 43 Year
  Sex: Male

DRUGS (3)
  1. VITAMIN D [VITAMIN D NOS] [Concomitant]
     Active Substance: VITAMIN D NOS
     Indication: OSTEOPENIA
     Dosage: 400-800 IU, QD
     Dates: start: 2012
  2. TRUVADA [Suspect]
     Active Substance: EMTRICITABINE\TENOFOVIR DISOPROXIL FUMARATE
     Indication: HIV INFECTION
     Dosage: UNK
     Route: 048
     Dates: start: 201201, end: 20140622
  3. BIKTARVY [Concomitant]
     Active Substance: BICTEGRAVIR SODIUM\EMTRICITABINE\TENOFOVIR ALAFENAMIDE FUMARATE

REACTIONS (12)
  - Anhedonia [Unknown]
  - Osteopenia [Not Recovered/Not Resolved]
  - Osteoarthritis [Not Recovered/Not Resolved]
  - Chronic kidney disease [Not Recovered/Not Resolved]
  - Renal failure [Unknown]
  - Emotional distress [Unknown]
  - Pain [Unknown]
  - Anxiety [Unknown]
  - Bone density decreased [Unknown]
  - Osteoporosis [Unknown]
  - Multiple fractures [Unknown]
  - Economic problem [Unknown]

NARRATIVE: CASE EVENT DATE: 2012
